FAERS Safety Report 4678827-0 (Version None)
Quarter: 2005Q2

REPORT INFORMATION
  Report Type: 
  Country: None (occurrence: None)
  Receive Date: 20050531
  Receipt Date: 20050518
  Transmission Date: 20051028
  Serious: Yes (Death, Other)
  Sender: FDA-Public Use
  Company Number: 2005US-00538

PATIENT
  Age: 17 Year
  Sex: Male
  Weight: 71.2 kg

DRUGS (2)
  1. ISOTRETINOIN [Suspect]
     Indication: ACNE
     Dosage: 20 MG, QD, ORAL
     Route: 048
     Dates: start: 20050208, end: 20050316
  2. ISOTRETINOIN [Suspect]
     Indication: ACNE
     Dosage: 10 MG, QD, ORAL
     Route: 048
     Dates: start: 20050125, end: 20050208

REACTIONS (4)
  - COMPLETED SUICIDE [None]
  - DELUSION [None]
  - GUN SHOT WOUND [None]
  - PSYCHOTIC DISORDER [None]
